FAERS Safety Report 8397457-0 (Version None)
Quarter: 2012Q2

REPORT INFORMATION
  Report Type: 
  Country: None (occurrence: None)
  Receive Date: 20120529
  Receipt Date: 20120529
  Transmission Date: 20120825
  Serious: Yes (Life-Threatening)
  Sender: FDA-Public Use
  Company Number: None

PATIENT
  Age: 55 Year
  Sex: Female
  Weight: 59.8748 kg

DRUGS (2)
  1. ANASTROZOLE [Suspect]
     Indication: BREAST CANCER
     Dosage: 1MG 1X DAY BUCCAL
     Route: 002
     Dates: start: 20120301, end: 20120525
  2. HUMALOG [Suspect]
     Indication: TYPE 1 DIABETES MELLITUS
     Dosage: UP TO 60 UNITS A DAY 24 HOURS A DAY IV BOLUS
     Route: 040
     Dates: start: 19850101, end: 20120523

REACTIONS (4)
  - HYPOGLYCAEMIA [None]
  - HEADACHE [None]
  - MYALGIA [None]
  - DECREASED APPETITE [None]
